FAERS Safety Report 13486360 (Version 1)
Quarter: 2017Q2

REPORT INFORMATION
  Report Type: Spontaneous
  Country: CN (occurrence: CN)
  Receive Date: 20170426
  Receipt Date: 20170426
  Transmission Date: 20170830
  Serious: Yes (Other)
  Sender: FDA-Public Use
  Company Number: CN-BAXTER-2017BAX017533

PATIENT
  Age: 41 Year
  Sex: Female
  Weight: 59 kg

DRUGS (2)
  1. 0.9% SODIUM CHLORIDE INJECTION [Suspect]
     Active Substance: SODIUM CHLORIDE
     Indication: MEDICATION DILUTION
     Route: 041
     Dates: start: 20161208, end: 20161208
  2. OXYTOCIN. [Suspect]
     Active Substance: OXYTOCIN
     Indication: IMMINENT ABORTION
     Dosage: 10 UNITS
     Route: 041
     Dates: start: 20161208, end: 20161208

REACTIONS (4)
  - Palpitations [Recovering/Resolving]
  - Chills [Recovering/Resolving]
  - Pyrexia [Recovering/Resolving]
  - Exposure during pregnancy [Not Recovered/Not Resolved]

NARRATIVE: CASE EVENT DATE: 20161208
